FAERS Safety Report 4656768-2 (Version None)
Quarter: 2005Q2

REPORT INFORMATION
  Report Type: 
  Country: None (occurrence: None)
  Receive Date: 20050408
  Receipt Date: 20050215
  Transmission Date: 20051028
  Serious: No
  Sender: FDA-Public Use
  Company Number: 230606K05USA

PATIENT
  Age: 40 Year
  Sex: Male

DRUGS (2)
  1. REBIF (INTERFERON BETA) [Suspect]
     Indication: MULTIPLE SCLEROSIS
     Dosage: 44 MCG, 3 IN 1 WEEKS, SUBCUTANEOUS
     Route: 058
     Dates: start: 20030102
  2. PROZAC [Concomitant]

REACTIONS (2)
  - CONFUSIONAL STATE [None]
  - NASOPHARYNGITIS [None]
